FAERS Safety Report 19032760 (Version 2)
Quarter: 2021Q2

REPORT INFORMATION
  Report Type: Spontaneous
  Country: FR (occurrence: FR)
  Receive Date: 20210319
  Receipt Date: 20210401
  Transmission Date: 20210717
  Serious: Yes (Congenital Anomaly)
  Sender: FDA-Public Use
  Company Number: FR-PFIZER INC-2021272160

PATIENT
  Sex: Male

DRUGS (3)
  1. KETOPROFEN. [Suspect]
     Active Substance: KETOPROFEN
     Indication: MIGRAINE
     Dosage: 100 MG, WEEKLY
     Route: 064
     Dates: start: 20200914, end: 20201215
  2. ELETRIPTAN HBR [Suspect]
     Active Substance: ELETRIPTAN HYDROBROMIDE
     Indication: MIGRAINE
     Dosage: 40 MG, WEEKLY
     Route: 064
     Dates: start: 20201005, end: 20201215
  3. ALMOTRIPTAN. [Suspect]
     Active Substance: ALMOTRIPTAN
     Indication: MIGRAINE
     Dosage: 12.5 MG, WEEKLY
     Route: 064
     Dates: start: 20200914, end: 20201005

REACTIONS (3)
  - Maternal exposure during pregnancy [Unknown]
  - Talipes [Unknown]
  - Spina bifida [Unknown]

NARRATIVE: CASE EVENT DATE: 2020
